FAERS Safety Report 6100186-7 (Version None)
Quarter: 2009Q1

REPORT INFORMATION
  Report Type: 
  Country: None (occurrence: None)
  Receive Date: 20090303
  Receipt Date: 20090120
  Transmission Date: 20090719
  Serious: Yes (Death)
  Sender: FDA-Public Use
  Company Number: US-ROCHE-611935

PATIENT
  Sex: Male
  Weight: 51.2 kg

DRUGS (5)
  1. CAPECITABINE [Suspect]
     Indication: GLIOMA
     Dosage: DOSAGE FORM REPORTED AS RDT
     Route: 048
     Dates: start: 20071016
  2. CAPECITABINE [Suspect]
     Dosage: LAST DOSE PRIOR TO SAE: 27 FEBRUARY 2008.
     Route: 048
     Dates: end: 20080227
  3. BEVACIZUMAB [Concomitant]
     Dates: start: 20080418, end: 20080709
  4. IRINOTECAN HCL [Concomitant]
     Dates: start: 20080418, end: 20080709
  5. MORPHINE [Concomitant]
     Dosage: TDD: 10 MG, EVERY 2 HOURS AS NEEDED.
     Dates: start: 20080715, end: 20080810

REACTIONS (1)
  - DEATH [None]
